FAERS Safety Report 14818730 (Version 4)
Quarter: 2019Q3

REPORT INFORMATION
  Report Type: Spontaneous
  Country: US (occurrence: US)
  Receive Date: 20180427
  Receipt Date: 20190919
  Transmission Date: 20191004
  Serious: Yes (Other)
  Sender: FDA-Public Use
  Company Number: US-PFIZER INC-2018128541

PATIENT
  Age: 59 Year
  Sex: Female

DRUGS (1)
  1. IBRANCE [Suspect]
     Active Substance: PALBOCICLIB
     Indication: ENDOMETRIAL NEOPLASM
     Dosage: 125 MG, CYCLIC (TAKE 1 CAPSULE BY MOUTH DAILY FOR 21 DAYS ON AND 7 DAYS OFF)
     Route: 048
     Dates: start: 201711

REACTIONS (8)
  - Blood count abnormal [Unknown]
  - Neuropathy peripheral [Unknown]
  - Alopecia [Unknown]
  - Nausea [Unknown]
  - Blood test abnormal [Unknown]
  - Product use in unapproved indication [Unknown]
  - Oral herpes [Unknown]
  - Stomatitis [Unknown]

NARRATIVE: CASE EVENT DATE: 201711
